FAERS Safety Report 9384732 (Version 1)
Quarter: 2013Q3

REPORT INFORMATION
  Report Type: Spontaneous
  Country: US (occurrence: US)
  Receive Date: 20130705
  Receipt Date: 20130705
  Transmission Date: 20140515
  Serious: Yes (Other)
  Sender: FDA-Public Use
  Company Number: CHPA2013US010649

PATIENT
  Age: 84 Year
  Sex: Female

DRUGS (4)
  1. EXCEDRIN UNKNOWN [Suspect]
     Indication: ARTHRITIS
     Dosage: 1 DF, PRN
  2. EXCEDRIN UNKNOWN [Suspect]
     Indication: BACK PAIN
  3. EXCEDRIN PM [Suspect]
     Indication: INSOMNIA
     Dosage: 0.5 DF, QHS
     Route: 048
  4. EXCEDRIN PM [Suspect]
     Indication: ARTHRITIS

REACTIONS (5)
  - Bronchitis [Recovering/Resolving]
  - Sinusitis [Recovering/Resolving]
  - Malaise [Recovering/Resolving]
  - Underdose [Unknown]
  - Expired drug administered [Unknown]
